FAERS Safety Report 13760590 (Version 6)
Quarter: 2017Q4

REPORT INFORMATION
  Report Type: Spontaneous
  Country: DE (occurrence: DE)
  Receive Date: 20170717
  Receipt Date: 20171222
  Transmission Date: 20180320
  Serious: Yes (Hospitalization)
  Sender: FDA-Public Use
  Company Number: DE-TEVA-785054GER

PATIENT
  Age: 76 Year
  Sex: Male
  Weight: 97.4 kg

DRUGS (21)
  1. FALITHROM [Concomitant]
     Active Substance: PHENPROCOUMON
  2. TOREM [Concomitant]
     Active Substance: TORSEMIDE
     Dosage: 10 MILLIGRAM DAILY;
  3. AMLODIPIN [Concomitant]
     Active Substance: AMLODIPINE BESYLATE
     Dosage: 10 MILLIGRAM DAILY;
  4. RAMIPRIL. [Concomitant]
     Active Substance: RAMIPRIL
     Dosage: 10 MILLIGRAM DAILY;
  5. BICALUTAMID [Suspect]
     Active Substance: BICALUTAMIDE
     Indication: PROSTATE CANCER
     Route: 048
     Dates: start: 20170430, end: 20170508
  6. CALCIVIT D [Concomitant]
  7. BELOC-ZOC MITE [Concomitant]
     Active Substance: METOPROLOL SUCCINATE
  8. VALSARTAN. [Concomitant]
     Active Substance: VALSARTAN
     Indication: DIABETIC NEPHROPATHY
  9. METFORMIN [Concomitant]
     Active Substance: METFORMIN HYDROCHLORIDE
  10. FOLSAN [Concomitant]
     Active Substance: FOLIC ACID
     Dosage: 5 MILLIGRAM DAILY;
  11. HCT [Concomitant]
     Active Substance: HYDROCHLOROTHIAZIDE
  12. INSULIN LISPRO [Concomitant]
     Active Substance: INSULIN LISPRO
  13. PANTOZOL [Concomitant]
     Active Substance: PANTOPRAZOLE SODIUM
     Dosage: 40 MILLIGRAM DAILY;
  14. NOVAMINSULFON [Concomitant]
     Active Substance: METAMIZOLE
  15. FLUVASTATIN [Concomitant]
     Active Substance: FLUVASTATIN SODIUM
     Dosage: 40 MILLIGRAM DAILY;
  16. FERRO SANOL [Concomitant]
     Active Substance: FERROUS GLYCINE SULFATE
     Dosage: 100 MILLIGRAM DAILY;
  17. ALLOPURINOL. [Concomitant]
     Active Substance: ALLOPURINOL
  18. HYDROMORPHON [Concomitant]
     Active Substance: HYDROMORPHONE
  19. ISOPHANE INSULIN [Concomitant]
     Active Substance: INSULIN NOS
  20. JANUVIA [Concomitant]
     Active Substance: SITAGLIPTIN PHOSPHATE
     Dosage: 50 MILLIGRAM DAILY;
  21. VALSARTAN. [Concomitant]
     Active Substance: VALSARTAN
     Indication: HYPERTENSION
     Dosage: 80 MILLIGRAM DAILY; 1-0-0
     Dates: end: 20170512

REACTIONS (2)
  - Cutaneous vasculitis [Not Recovered/Not Resolved]
  - Nephrotic syndrome [Not Recovered/Not Resolved]

NARRATIVE: CASE EVENT DATE: 20170501
